FAERS Safety Report 6526777-7 (Version None)
Quarter: 2010Q1

REPORT INFORMATION
  Report Type: 
  Country: None (occurrence: None)
  Receive Date: 20100105
  Receipt Date: 20091215
  Transmission Date: 20100710
  Serious: Yes (Other)
  Sender: FDA-Public Use
  Company Number: IE-BAYER-200942986GPV

PATIENT
  Age: 43 Year
  Sex: Female

DRUGS (1)
  1. MIRENA [Suspect]
     Indication: DRUG USE FOR UNKNOWN INDICATION
     Route: 015
     Dates: start: 20081212, end: 20090202

REACTIONS (4)
  - ABDOMINAL PAIN [None]
  - ADENOMYOSIS [None]
  - GENITAL HAEMORRHAGE [None]
  - PAIN [None]
